FAERS Safety Report 5728939-5 (Version None)
Quarter: 2008Q2

REPORT INFORMATION
  Report Type: 
  Country: None (occurrence: None)
  Receive Date: 20080505
  Receipt Date: 20080428
  Transmission Date: 20081010
  Serious: No
  Sender: FDA-Public Use
  Company Number: APP200800337

PATIENT

DRUGS (2)
  1. HEPARIN SODIUM INJECTION [Suspect]
     Indication: ANTICOAGULANT THERAPY
     Dosage: 5500 USP UNITS, ONCE, INTRAVENOUS : 1000 USP UNITS, ONCE, INTRAVENOUS
     Route: 042
     Dates: start: 20080428, end: 20080428
  2. HEPARIN SODIUM INJECTION [Suspect]
     Indication: ANTICOAGULANT THERAPY
     Dosage: 5500 USP UNITS, ONCE, INTRAVENOUS : 1000 USP UNITS, ONCE, INTRAVENOUS
     Route: 042
     Dates: start: 20080428, end: 20080428

REACTIONS (2)
  - COAGULATION TIME PROLONGED [None]
  - DRUG INEFFECTIVE [None]
